FAERS Safety Report 4509101-0 (Version None)
Quarter: 2004Q4

REPORT INFORMATION
  Report Type: 
  Country: None (occurrence: None)
  Receive Date: 20041025
  Receipt Date: 20030825
  Transmission Date: 20050328
  Serious: Yes (Other)
  Sender: FDA-Public Use
  Company Number: NSADSS2003024474

PATIENT
  Sex: Female

DRUGS (3)
  1. REMICADE [Suspect]
     Indication: RHEUMATOID ARTHRITIS
     Dosage: 300 MG, 1 IN 1 AS NECESSARY, INTRAVENOUS DRIP
     Route: 041
     Dates: start: 20001222, end: 20001222
  2. REMICADE [Suspect]
     Dosage: 300 MG, INTRAVENOUS DRIP
     Route: 041
     Dates: start: 20030403, end: 20030403
  3. METHOTREXATE SODIUM [Concomitant]

REACTIONS (1)
  - NON-HODGKIN'S LYMPHOMA [None]
